FAERS Safety Report 18756967 (Version 2)
Quarter: 2021Q2

REPORT INFORMATION
  Report Type: Report from Study
  Country: CA (occurrence: CA)
  Receive Date: 20210119
  Receipt Date: 20210423
  Transmission Date: 20210717
  Serious: Yes (Death, Other)
  Sender: FDA-Public Use
  Company Number: CA-MYLANLABS-2021M1002267

PATIENT
  Age: 55 Year
  Sex: Male

DRUGS (2)
  1. CLOZAPINE. [Suspect]
     Active Substance: CLOZAPINE
     Indication: SCHIZOAFFECTIVE DISORDER
     Dosage: UNK
     Dates: start: 20171016, end: 20181206
  2. CLOZAPINE. [Suspect]
     Active Substance: CLOZAPINE
     Dosage: UNK
     Dates: start: 20200805

REACTIONS (4)
  - Arteriosclerosis [Fatal]
  - General physical health deterioration [Unknown]
  - Pneumonia aspiration [Fatal]
  - Vascular dementia [Unknown]

NARRATIVE: CASE EVENT DATE: 20210111
